FAERS Safety Report 17813939 (Version 1)
Quarter: 2020Q2

REPORT INFORMATION
  Report Type: Spontaneous
  Country: US (occurrence: US)
  Receive Date: 20200521
  Receipt Date: 20200521
  Transmission Date: 20200714
  Serious: No
  Sender: FDA-Public Use
  Company Number: US-009507513-2005USA006757

PATIENT
  Age: 60 Year
  Sex: Male

DRUGS (5)
  1. NOXAFIL [Suspect]
     Active Substance: POSACONAZOLE
     Indication: SINUSITIS ASPERGILLUS
     Route: 048
  2. AMPHOTERICIN B. [Concomitant]
     Active Substance: AMPHOTERICIN B
     Indication: BRONCHOPULMONARY ASPERGILLOSIS
  3. NOXAFIL [Suspect]
     Active Substance: POSACONAZOLE
     Indication: HISTOPLASMOSIS
  4. NOXAFIL [Suspect]
     Active Substance: POSACONAZOLE
     Indication: BRONCHOPULMONARY ASPERGILLOSIS
  5. AMPHOTERICIN B. [Concomitant]
     Active Substance: AMPHOTERICIN B
     Indication: SINUSITIS ASPERGILLUS

REACTIONS (1)
  - Product use in unapproved indication [Unknown]
